FAERS Safety Report 22618409 (Version 1)
Quarter: 2023Q2

REPORT INFORMATION
  Report Type: Spontaneous
  Country: US (occurrence: US)
  Receive Date: 20230620
  Receipt Date: 20230620
  Transmission Date: 20230721
  Serious: No
  Sender: FDA-Public Use
  Company Number: US-AMGEN-USASL2019082552

PATIENT
  Age: 63 Year
  Sex: Female

DRUGS (1)
  1. REPATHA [Suspect]
     Active Substance: EVOLOCUMAB
     Indication: Low density lipoprotein increased
     Dosage: 140 MILLIGRAM, Q2WK
     Route: 065
     Dates: start: 201903

REACTIONS (3)
  - Injection site pain [Unknown]
  - Rhinorrhoea [Unknown]
  - Wrong technique in product usage process [Unknown]

NARRATIVE: CASE EVENT DATE: 20190518
